FAERS Safety Report 5565130-X (Version None)
Quarter: 2007Q4

REPORT INFORMATION
  Report Type: 
  Country: None (occurrence: None)
  Receive Date: 20071213
  Receipt Date: 20071121
  Transmission Date: 20080405
  Serious: Yes (Life-Threatening, Hospitalization, Other)
  Sender: FDA-Public Use
  Company Number: 2007SP023771

PATIENT
  Sex: Male

DRUGS (1)
  1. CORICIDIN [Suspect]
     Indication: DRUG ABUSE
     Dosage: 20 DF; PO
     Route: 048
     Dates: start: 20071101

REACTIONS (2)
  - BLOOD PRESSURE IMMEASURABLE [None]
  - INTENTIONAL OVERDOSE [None]
